FAERS Safety Report 4803655-2 (Version None)
Quarter: 2005Q4

REPORT INFORMATION
  Report Type: 
  Country: None (occurrence: None)
  Receive Date: 20051014
  Receipt Date: 20040927
  Transmission Date: 20060501
  Serious: No
  Sender: FDA-Public Use
  Company Number: 04P-163-0275149-00

PATIENT
  Age: 43 Year
  Sex: Male
  Weight: 70.3075 kg

DRUGS (5)
  1. KALETRA [Suspect]
     Indication: HIV INFECTION
     Dosage: 3 TABLET, 2 IN 1 D, PER ORAL
     Route: 048
     Dates: start: 20040301
  2. VIREAD [Concomitant]
  3. FLUCONAZOLE [Concomitant]
  4. EMTRIVA [Concomitant]
  5. BACTRIM [Concomitant]

REACTIONS (1)
  - DIARRHOEA [None]
